FAERS Safety Report 6028399-3 (Version None)
Quarter: 2009Q1

REPORT INFORMATION
  Report Type: 
  Country: None (occurrence: None)
  Receive Date: 20090106
  Receipt Date: 20081230
  Transmission Date: 20090719
  Serious: Yes (Hospitalization)
  Sender: FDA-Public Use
  Company Number: US-ABBOTT-08P-163-0495276-00

PATIENT
  Sex: Female

DRUGS (4)
  1. ZEMPLAR CAPSULES 2MCG [Suspect]
     Indication: HYPERPARATHYROIDISM
     Dates: start: 20080701
  2. LISINOPRIL [Concomitant]
     Indication: DRUG USE FOR UNKNOWN INDICATION
  3. CATAPRES [Concomitant]
     Indication: DRUG USE FOR UNKNOWN INDICATION
  4. TENORMIN [Concomitant]
     Indication: DRUG USE FOR UNKNOWN INDICATION

REACTIONS (1)
  - DYSPHAGIA [None]
